FAERS Safety Report 24834294 (Version 1)
Quarter: 2025Q1

REPORT INFORMATION
  Report Type: Report from Study
  Country: US (occurrence: US)
  Receive Date: 20250113
  Receipt Date: 20250113
  Transmission Date: 20250409
  Serious: Yes (Hospitalization)
  Sender: ABBVIE
  Company Number: US-ABBVIE-6035342

PATIENT
  Age: 23 Year
  Sex: Female
  Weight: 58 kg

DRUGS (7)
  1. HUMIRA [Suspect]
     Active Substance: ADALIMUMAB
     Indication: Crohn^s disease
     Dosage: INITIAL LOADING DOSE ; FORM STRENGTH: 80 MILLIGRAM
     Route: 058
     Dates: start: 202411, end: 202411
  2. HUMIRA [Suspect]
     Active Substance: ADALIMUMAB
  3. DEXMETHYLPHENIDATE [Concomitant]
     Active Substance: DEXMETHYLPHENIDATE
     Indication: Bipolar disorder
  4. PREDNISONE [Concomitant]
     Active Substance: PREDNISONE
     Indication: Crohn^s disease
  5. PANTOPRAZOLE [Concomitant]
     Active Substance: PANTOPRAZOLE
     Indication: Bipolar disorder
  6. WELLBUTRIN [Concomitant]
     Active Substance: BUPROPION HYDROCHLORIDE
     Indication: Bipolar disorder
  7. SAPHRIS [Concomitant]
     Active Substance: ASENAPINE MALEATE
     Indication: Bipolar disorder

REACTIONS (5)
  - Abdominal distension [Recovered/Resolved]
  - Gastrointestinal disorder [Not Recovered/Not Resolved]
  - Tubo-ovarian abscess [Recovering/Resolving]
  - Device breakage [Unknown]
  - Abdominal pain [Recovered/Resolved]

NARRATIVE: CASE EVENT DATE: 20240101
